FAERS Safety Report 6731967-4 (Version None)
Quarter: 2010Q2

REPORT INFORMATION
  Report Type: 
  Country: None (occurrence: None)
  Receive Date: 20100519
  Receipt Date: 20100505
  Transmission Date: 20101027
  Serious: Yes (Other)
  Sender: FDA-Public Use
  Company Number: PHHY2010DE29498

PATIENT
  Age: 80 Year
  Sex: Male

DRUGS (2)
  1. RASILEZ [Suspect]
     Dosage: 300 MG, QD
  2. RASILEZ [Suspect]
     Dosage: 150 MG, QD

REACTIONS (1)
  - METABOLIC DISORDER [None]
